FAERS Safety Report 8281865-2 (Version None)
Quarter: 2012Q2

REPORT INFORMATION
  Report Type: 
  Country: None (occurrence: None)
  Receive Date: 20120413
  Receipt Date: 20120410
  Transmission Date: 20120825
  Serious: Yes (Hospitalization, Disabling)
  Sender: FDA-Public Use
  Company Number: PHHY2012FR030908

PATIENT
  Sex: Female

DRUGS (1)
  1. ZOMETA [Suspect]
     Dosage: BIMONTHLY
     Dates: start: 20100101

REACTIONS (2)
  - OSTEONECROSIS OF JAW [None]
  - INFECTION [None]
